FAERS Safety Report 4476091-9 (Version None)
Quarter: 2004Q4

REPORT INFORMATION
  Report Type: 
  Country: None (occurrence: None)
  Receive Date: 20041012
  Receipt Date: 20040930
  Transmission Date: 20050328
  Serious: Yes (Hospitalization)
  Sender: FDA-Public Use
  Company Number: 209366

PATIENT
  Sex: Female

DRUGS (4)
  1. RITUXAN [Suspect]
     Indication: ANAEMIA HAEMOLYTIC AUTOIMMUNE
     Dates: start: 20020501
  2. PREDNISONE [Concomitant]
  3. IMURAN [Concomitant]
  4. IVIG (GLOBULIN, IMMUNE) [Concomitant]

REACTIONS (4)
  - AUTOIMMUNE HEPATITIS [None]
  - PARAINFLUENZAE VIRUS INFECTION [None]
  - PNEUMOCYSTIS CARINII PNEUMONIA [None]
  - STAPHYLOCOCCAL INFECTION [None]
